FAERS Safety Report 9207063 (Version 1)
Quarter: 2013Q2

REPORT INFORMATION
  Report Type: Spontaneous
  Country: MX (occurrence: MX)
  Receive Date: 20130403
  Receipt Date: 20130403
  Transmission Date: 20140414
  Serious: Yes (Other)
  Sender: FDA-Public Use
  Company Number: PHHY2013MX030740

PATIENT
  Age: 73 Year
  Sex: Male

DRUGS (3)
  1. STALEVO [Suspect]
     Indication: PARKINSON^S DISEASE
     Dosage: 200/150/37 MG AT 3 DF, DAILY
     Route: 048
     Dates: start: 20080805
  2. DIAMIN//DIHYDROERGOCRYPTINE ALFA-MESILATE [Concomitant]
     Indication: PARKINSON^S DISEASE
     Dosage: 3 DF, DAILY
  3. CAPTOPRIL [Concomitant]
     Indication: BLOOD PRESSURE ABNORMAL
     Dosage: 1 DF, DAILY

REACTIONS (2)
  - Dysstasia [Not Recovered/Not Resolved]
  - Movement disorder [Not Recovered/Not Resolved]
